FAERS Safety Report 10347323 (Version 1)
Quarter: 2014Q3

REPORT INFORMATION
  Report Type: Spontaneous
  Country: US (occurrence: US)
  Receive Date: 20140729
  Receipt Date: 20140729
  Transmission Date: 20150326
  Serious: No
  Sender: FDA-Public Use
  Company Number: US-PFIZER INC-2014209894

PATIENT
  Age: 59 Year
  Sex: Female

DRUGS (5)
  1. NIASPAN [Suspect]
     Active Substance: NIACIN
  2. BENZYLPENICILLIN POTASSIUM [Suspect]
     Active Substance: PENICILLIN G POTASSIUM
  3. CEPHALOSPORINS AND RELATED SUBSTANCES [Suspect]
     Active Substance: UNSPECIFIED INGREDIENT
  4. MEDROL [Suspect]
     Active Substance: METHYLPREDNISOLONE
  5. SILVER SULFADIAZENE [Suspect]
     Active Substance: SILVER SULFADIAZINE

REACTIONS (1)
  - Drug hypersensitivity [Unknown]
